FAERS Safety Report 7214875-4 (Version None)
Quarter: 2011Q1

REPORT INFORMATION
  Report Type: 
  Country: None (occurrence: None)
  Receive Date: 20110107
  Receipt Date: 20100419
  Transmission Date: 20110831
  Serious: No
  Sender: FDA-Public Use
  Company Number: A0855687A

PATIENT
  Age: 52 Year
  Sex: Male

DRUGS (3)
  1. COUMADIN [Concomitant]
  2. LOVAZA [Suspect]
     Dosage: 1CAP PER DAY
     Route: 048
     Dates: start: 20100101
  3. UNKNOWN MEDICATION [Concomitant]

REACTIONS (3)
  - DYSPEPSIA [None]
  - DIARRHOEA [None]
  - INFLUENZA [None]
